FAERS Safety Report 8615581-1 (Version None)
Quarter: 2012Q3

REPORT INFORMATION
  Report Type: 
  Country: None (occurrence: None)
  Receive Date: 20120823
  Receipt Date: 20120816
  Transmission Date: 20120928
  Serious: Yes (Other)
  Sender: FDA-Public Use
  Company Number: CA-JNJFOC-20120711355

PATIENT
  Age: 18 Month
  Sex: Male

DRUGS (2)
  1. TYLENOL [Suspect]
     Indication: ACCIDENTAL EXPOSURE
     Route: 048
  2. TYLENOL [Suspect]
     Route: 048

REACTIONS (2)
  - ACCIDENTAL DRUG INTAKE BY CHILD [None]
  - PRODUCT PACKAGING ISSUE [None]
